FAERS Safety Report 5408229-0 (Version None)
Quarter: 2007Q3

REPORT INFORMATION
  Report Type: 
  Country: None (occurrence: None)
  Receive Date: 20070806
  Receipt Date: 20070806
  Transmission Date: 20080115
  Serious: Yes (Hospitalization)
  Sender: FDA-Public Use
  Company Number: None

PATIENT
  Age: 60 Year
  Sex: Male
  Weight: 77.8826 kg

DRUGS (2)
  1. FUROSEMIDE [Suspect]
     Indication: CARDIAC FAILURE CONGESTIVE
     Dosage: 40MG BID PO
     Route: 048
     Dates: start: 20070201, end: 20070508
  2. METOLAZONE [Suspect]
     Indication: CARDIAC FAILURE CONGESTIVE
     Dosage: 5MG BID PO
     Route: 048

REACTIONS (4)
  - ASTHENIA [None]
  - FALL [None]
  - HYPOKALAEMIA [None]
  - HYPOVOLAEMIA [None]
